FAERS Safety Report 5738714-3 (Version None)
Quarter: 2008Q2

REPORT INFORMATION
  Report Type: 
  Country: None (occurrence: None)
  Receive Date: 20080513
  Receipt Date: 20080513
  Transmission Date: 20081010
  Serious: Yes (Hospitalization)
  Sender: FDA-Public Use
  Company Number: None

PATIENT
  Sex: Male

DRUGS (12)
  1. AMITIZA [Suspect]
     Indication: CONSTIPATION
     Dosage: 24 MCG BID PO
     Route: 048
     Dates: start: 20080410, end: 20080416
  2. COLACE [Concomitant]
  3. COUMADIN [Concomitant]
  4. EXELON [Concomitant]
  5. SPIRONOLACTONE [Concomitant]
  6. DEMADEX [Concomitant]
  7. LISINOPRIL [Concomitant]
  8. IRON [Concomitant]
  9. METOPROLOL TARTRATE [Concomitant]
  10. NITROGLYCERIN [Concomitant]
  11. DIGOXIN [Concomitant]
  12. PROCRIT [Concomitant]

REACTIONS (1)
  - BLOOD CREATININE INCREASED [None]
